FAERS Safety Report 4941639-4 (Version None)
Quarter: 2006Q1

REPORT INFORMATION
  Report Type: 
  Country: None (occurrence: None)
  Receive Date: 20060308
  Receipt Date: 20060228
  Transmission Date: 20060701
  Serious: Yes (Other)
  Sender: FDA-Public Use
  Company Number: 2006030810

PATIENT
  Sex: Female
  Weight: 81.6475 kg

DRUGS (6)
  1. NEURONTIN [Suspect]
     Indication: CONVULSION
  2. LYRICA [Suspect]
     Indication: CONVULSION
     Dosage: 300 MG (150 MG, 2 IN 1 D)
     Dates: end: 20060101
  3. KEPPRA [Suspect]
     Indication: CONVULSION
     Dosage: 900 MG (300 MG, 3 IN 1 D)
     Dates: start: 20060101, end: 20060101
  4. EVISTA [Concomitant]
  5. DIOVAN [Concomitant]
  6. ZIAC [Concomitant]

REACTIONS (8)
  - BALANCE DISORDER [None]
  - CONVULSION [None]
  - DIZZINESS [None]
  - FEELING ABNORMAL [None]
  - HYPERPHAGIA [None]
  - LOSS OF CONSCIOUSNESS [None]
  - MIGRAINE [None]
  - WEIGHT INCREASED [None]
